FAERS Safety Report 4599055-3 (Version None)
Quarter: 2005Q1

REPORT INFORMATION
  Report Type: 
  Country: None (occurrence: None)
  Receive Date: 20050304
  Receipt Date: 20050224
  Transmission Date: 20050727
  Serious: Yes (Disabling, Other)
  Sender: FDA-Public Use
  Company Number: US-MERCK-0502USA03475

PATIENT
  Sex: Female

DRUGS (1)
  1. VIOXX [Suspect]
     Indication: PAIN
     Route: 048
     Dates: start: 20030101

REACTIONS (3)
  - BLOOD CHOLESTEROL INCREASED [None]
  - BRAIN DAMAGE [None]
  - MYOCARDIAL INFARCTION [None]
